FAERS Safety Report 6633980-4 (Version None)
Quarter: 2010Q1

REPORT INFORMATION
  Report Type: 
  Country: None (occurrence: None)
  Receive Date: 20100310
  Receipt Date: 20100226
  Transmission Date: 20100710
  Serious: Yes (Hospitalization)
  Sender: FDA-Public Use
  Company Number: DSJ-2010-03082

PATIENT
  Age: 67 Year
  Sex: Female
  Weight: 56.3 kg

DRUGS (2)
  1. OLMESARTAN MEDOXOMIL [Suspect]
     Indication: ESSENTIAL HYPERTENSION
     Dosage: 20 MG (20 MG,1 IN 1 D),PER ORAL
     Route: 048
     Dates: start: 20061225
  2. MYSLEE (ZOLPIDEM TARTRATE)  (ZOLPIDEM TARTRATE) [Concomitant]

REACTIONS (1)
  - ANGINA PECTORIS [None]
